FAERS Safety Report 8595394-X (Version None)
Quarter: 2012Q3

REPORT INFORMATION
  Report Type: 
  Country: None (occurrence: None)
  Receive Date: 20120815
  Receipt Date: 20120516
  Transmission Date: 20120928
  Serious: Yes (Hospitalization)
  Sender: FDA-Public Use
  Company Number: US-BRISTOL-MYERS SQUIBB COMPANY-16578122

PATIENT
  Age: 51 Year
  Sex: Male

DRUGS (5)
  1. PLAVIX [Concomitant]
  2. ONGLYZA [Suspect]
     Indication: TYPE 2 DIABETES MELLITUS
     Route: 048
     Dates: start: 20110830, end: 20120508
  3. METFORMIN HYDROCHLORIDE [Concomitant]
  4. GLIMEPIRIDE [Concomitant]
  5. SIMVASTATIN [Concomitant]

REACTIONS (1)
  - PANCREATITIS [None]
